FAERS Safety Report 4459683-2 (Version None)
Quarter: 2004Q3

REPORT INFORMATION
  Report Type: 
  Country: None (occurrence: None)
  Receive Date: 20040923
  Receipt Date: 20040923
  Transmission Date: 20050211
  Serious: No
  Sender: FDA-Public Use
  Company Number: None

PATIENT
  Age: 77 Month
  Sex: Male
  Weight: 99.7913 kg

DRUGS (7)
  1. NESIRITIDE  1.5MG/ 250ML [Suspect]
     Indication: CARDIAC FAILURE CONGESTIVE
     Dosage: 0.01MCG/KG/M   INTRAVENOUS
     Route: 042
     Dates: start: 20040113, end: 20040114
  2. LISINOPRIL [Concomitant]
  3. COVERA-HS [Concomitant]
  4. PRAVACHOL [Concomitant]
  5. ACTOS [Concomitant]
  6. VIOXX [Concomitant]
  7. ECOTRIN [Concomitant]

REACTIONS (2)
  - HYPOTENSION [None]
  - INFUSION RELATED REACTION [None]
